FAERS Safety Report 5563348-3 (Version None)
Quarter: 2007Q4

REPORT INFORMATION
  Report Type: 
  Country: None (occurrence: None)
  Receive Date: 20071217
  Receipt Date: 20071212
  Transmission Date: 20080405
  Serious: Yes (Death)
  Sender: FDA-Public Use
  Company Number: PHEH2007US15631

PATIENT
  Age: 80 Year
  Sex: Female

DRUGS (9)
  1. TEKTURNA [Suspect]
     Indication: HYPERTENSION
     Dosage: 150 MG, QD
     Dates: start: 20071024, end: 20071028
  2. TEKTURNA [Suspect]
     Dosage: 300 MG, QD
     Dates: start: 20071029
  3. ANTIHYPERTENSIVES [Concomitant]
  4. BENICAR [Concomitant]
     Dosage: 20 MG, UNK
  5. TOPROL-XL [Concomitant]
     Dosage: 50 MG, UNK
  6. TOPROL-XL [Concomitant]
     Dosage: 100 MG, UNK
     Dates: start: 20071001
  7. CLONIDINE [Concomitant]
     Dosage: 0.1 MG, PRN
     Dates: start: 20071024
  8. CLONIDINE [Concomitant]
     Dosage: 0.2 MG, PRN
     Dates: start: 20071109
  9. VERAPAMIL [Concomitant]

REACTIONS (2)
  - BLOOD PRESSURE INADEQUATELY CONTROLLED [None]
  - CEREBROVASCULAR ACCIDENT [None]
